FAERS Safety Report 5947671-6 (Version None)
Quarter: 2008Q4

REPORT INFORMATION
  Report Type: 
  Country: None (occurrence: None)
  Receive Date: 20081111
  Receipt Date: 20081103
  Transmission Date: 20090506
  Serious: Yes (Death, Hospitalization)
  Sender: FDA-Public Use
  Company Number: IT-RANBAXY-2008RR-18807

PATIENT
  Age: 30 Year
  Sex: Male

DRUGS (1)
  1. CIPROFLOXACIN HCL [Suspect]
     Indication: URINARY TRACT INFECTION
     Dosage: 1 G, QD
     Route: 048

REACTIONS (5)
  - ABDOMINAL PAIN [None]
  - HAEMOLYTIC ANAEMIA [None]
  - JAUNDICE [None]
  - PYREXIA [None]
  - THROMBOCYTOPENIA [None]
